FAERS Safety Report 7569215-8 (Version None)
Quarter: 2011Q2

REPORT INFORMATION
  Report Type: 
  Country: None (occurrence: None)
  Receive Date: 20110623
  Receipt Date: 20110610
  Transmission Date: 20111010
  Serious: Yes (Other)
  Sender: FDA-Public Use
  Company Number: PHHY2010NZ77048

PATIENT
  Sex: Male

DRUGS (3)
  1. CLOZAPINE [Suspect]
     Dosage: 200 MG, QD (NIGHT)
     Dates: end: 20110127
  2. CLOZAPINE [Suspect]
     Indication: SCHIZOPHRENIA
     Dosage: 225 MG, QD (NIGHT)
     Route: 048
     Dates: start: 20100304
  3. CLOZAPINE [Suspect]
     Dosage: 250 MG, QD (NIGHT)
     Route: 048
     Dates: start: 20100304, end: 20110127

REACTIONS (7)
  - BLOOD CHOLESTEROL INCREASED [None]
  - SERUM FERRITIN INCREASED [None]
  - WEIGHT INCREASED [None]
  - HEPATIC ENZYME INCREASED [None]
  - HYPERLIPIDAEMIA [None]
  - LIVER FUNCTION TEST ABNORMAL [None]
  - HEPATIC STEATOSIS [None]
